FAERS Safety Report 10038938 (Version 1)
Quarter: 2014Q1

REPORT INFORMATION
  Report Type: Report from Study
  Country: DE (occurrence: DE)
  Receive Date: 20140326
  Receipt Date: 20140326
  Transmission Date: 20141002
  Serious: Yes (Other)
  Sender: FDA-Public Use
  Company Number: DE-SA-2014SA036718

PATIENT
  Age: 59 Year
  Sex: Female
  Weight: 78 kg

DRUGS (5)
  1. MULTAQ [Suspect]
     Indication: ATRIAL FIBRILLATION
     Dates: start: 20120202
  2. BETA BLOCKING AGENTS [Concomitant]
     Dates: start: 201202
  3. MARCUMAR [Concomitant]
     Indication: EMBOLISM
     Dates: start: 201202
  4. ACE INHIBITOR NOS [Concomitant]
     Dates: start: 201202
  5. DIURETICS [Concomitant]

REACTIONS (1)
  - Atrial fibrillation [Not Recovered/Not Resolved]
